FAERS Safety Report 10691692 (Version 1)
Quarter: 2015Q1

REPORT INFORMATION
  Report Type: Spontaneous
  Country: KR (occurrence: KR)
  Receive Date: 20150105
  Receipt Date: 20150105
  Transmission Date: 20150720
  Serious: Yes (Hospitalization, Other)
  Sender: FDA-Public Use
  Company Number: KR-GLAXOSMITHKLINE-KR2014GSK045332

PATIENT
  Age: 78 Year
  Sex: Male

DRUGS (1)
  1. PAZOPANIB [Suspect]
     Active Substance: PAZOPANIB
     Indication: PRODUCT USED FOR UNKNOWN INDICATION
     Dosage: 800 MG, 1D
     Dates: start: 201308

REACTIONS (5)
  - Chest discomfort [Unknown]
  - Atrial natriuretic peptide increased [Unknown]
  - Akinesia [Unknown]
  - Congestive cardiomyopathy [Unknown]
  - Dyspnoea [Unknown]
